FAERS Safety Report 22344510 (Version 1)
Quarter: 2023Q2

REPORT INFORMATION
  Report Type: Report from Study
  Country: US (occurrence: US)
  Receive Date: 20230519
  Receipt Date: 20230519
  Transmission Date: 20230721
  Serious: Yes (Other)
  Sender: FDA-Public Use
  Company Number: US-ABBVIE-4770586

PATIENT
  Sex: Male

DRUGS (1)
  1. RINVOQ [Suspect]
     Active Substance: UPADACITINIB
     Indication: Dermatitis atopic
     Dosage: 15 MILLIGRAM
     Route: 048
     Dates: start: 202302

REACTIONS (9)
  - Spinal fusion surgery [Unknown]
  - Post procedural complication [Unknown]
  - Pain [Unknown]
  - Dermatitis atopic [Unknown]
  - Tooth loss [Unknown]
  - Staphylococcal infection [Unknown]
  - Multiple fractures [Unknown]
  - Hypersensitivity [Unknown]
  - Hypertension [Unknown]
